FAERS Safety Report 10209436 (Version 2)
Quarter: 2014Q2

REPORT INFORMATION
  Report Type: Report from Study
  Country: DE (occurrence: DE)
  Receive Date: 20140601
  Receipt Date: 20140601
  Transmission Date: 20141212
  Serious: No
  Sender: FDA-Public Use
  Company Number: PHHY2014DE036225

PATIENT
  Sex: Male

DRUGS (16)
  1. AMN107 [Suspect]
     Indication: CHRONIC MYELOID LEUKAEMIA
     Dosage: 600 MG, PER DAY
     Route: 048
     Dates: start: 20130510, end: 20140102
  2. ASS ^HEXAL^ [Concomitant]
  3. RAMIPRIL ALMUS [Concomitant]
     Dosage: 15 MG, UNK
  4. EXFORGE HCT [Concomitant]
     Dosage: 25 MG, UNK
  5. CLONISTADA [Concomitant]
     Dosage: 25 MG, UNK
  6. CLONISTADA [Concomitant]
     Dosage: 0.30 MG, UNK
  7. METOPROLOL [Concomitant]
     Dosage: 200 MG, UNK
  8. TORASEMID [Concomitant]
     Dosage: 20 MG, UNK
  9. CALCIUM ACETAT [Concomitant]
     Dosage: 1425 MG, UNK
  10. EINSALPHA [Concomitant]
     Dosage: 0.5 UG, UNK
  11. ALLOPURINOL [Concomitant]
     Dosage: 150 MG, UNK
  12. OMACOR [Concomitant]
     Dosage: 4000 MG, UNK
  13. DEKRISTOL [Concomitant]
     Dosage: 20000 IU, UNK
  14. JANUVIA [Concomitant]
     Dosage: 100 MG, UNK
  15. ENYGLID [Concomitant]
     Dosage: 6 MG, UNK
  16. ATORVASTATIN BASICS [Concomitant]
     Dosage: 40 MG, UNK

REACTIONS (1)
  - Dermatitis acneiform [Recovering/Resolving]
